FAERS Safety Report 21908007 (Version 1)
Quarter: 2023Q1

REPORT INFORMATION
  Report Type: Spontaneous
  Country: US (occurrence: None)
  Receive Date: 20230124
  Receipt Date: 20230124
  Transmission Date: 20230418
  Serious: Yes (Death, Life-Threatening, Hospitalization)
  Sender: FDA-Public Use
  Company Number: None

PATIENT
  Age: 64 Year
  Sex: Male
  Weight: 65 kg

DRUGS (1)
  1. BLENREP [Suspect]
     Active Substance: BELANTAMAB MAFODOTIN-BLMF
     Indication: Plasma cell myeloma
     Dates: start: 20220722, end: 20221208

REACTIONS (7)
  - Pneumonia staphylococcal [None]
  - Respiratory failure [None]
  - Respiratory failure [None]
  - Distributive shock [None]
  - Staphylococcal bacteraemia [None]
  - Acute respiratory distress syndrome [None]
  - Aspergillus infection [None]

NARRATIVE: CASE EVENT DATE: 20230103
